FAERS Safety Report 17135115 (Version 1)
Quarter: 2019Q4

REPORT INFORMATION
  Report Type: Spontaneous
  Country: US (occurrence: US)
  Receive Date: 20191210
  Receipt Date: 20191210
  Transmission Date: 20200122
  Serious: No
  Sender: FDA-Public Use
  Company Number: US-PFIZER INC-2019527484

PATIENT
  Age: 63 Year
  Sex: Female
  Weight: 72.12 kg

DRUGS (1)
  1. SKELAXIN [Suspect]
     Active Substance: METAXALONE
     Indication: BACK PAIN
     Dosage: 800 MG, 3X/DAY
     Route: 048
     Dates: start: 2017, end: 2019

REACTIONS (3)
  - Dysstasia [Unknown]
  - Memory impairment [Unknown]
  - Nervous system disorder [Unknown]

NARRATIVE: CASE EVENT DATE: 2019
